FAERS Safety Report 22294771 (Version 6)
Quarter: 2023Q4

REPORT INFORMATION
  Report Type: Report from Study
  Country: TR (occurrence: TR)
  Receive Date: 20230508
  Receipt Date: 20231115
  Transmission Date: 20240109
  Serious: Yes (Other)
  Sender: FDA-Public Use
  Company Number: TR-ASTELLAS-2023US013639

PATIENT
  Age: 77 Year
  Sex: Male

DRUGS (14)
  1. ENFORTUMAB VEDOTIN [Suspect]
     Active Substance: ENFORTUMAB VEDOTIN
     Indication: Bladder cancer
     Dosage: 1.25 MG/KG, CYCLIC (ON DAYS 1 AND 8 OF EACH CYCLE)
     Route: 042
     Dates: start: 20230315, end: 20230315
  2. ENFORTUMAB VEDOTIN [Suspect]
     Active Substance: ENFORTUMAB VEDOTIN
     Dosage: 1.25 MG/KG, CYCLIC (ON DAYS 1 AND 8 OF EACH CYCLE)
     Route: 042
     Dates: start: 20230322, end: 20230322
  3. ENFORTUMAB VEDOTIN [Suspect]
     Active Substance: ENFORTUMAB VEDOTIN
     Dosage: 1.25 MG/KG, CYCLIC (ON DAYS 1 AND 8 OF EACH CYCLE)
     Route: 042
     Dates: start: 20230405, end: 20230405
  4. ENFORTUMAB VEDOTIN [Suspect]
     Active Substance: ENFORTUMAB VEDOTIN
     Dosage: 1.25 MG/KG, CYCLIC (ON DAYS 1 AND 8 OF EACH CYCLE)
     Route: 042
     Dates: start: 20230412, end: 20230412
  5. ENFORTUMAB VEDOTIN [Suspect]
     Active Substance: ENFORTUMAB VEDOTIN
     Dosage: 1.25 MG/KG, CYCLIC (ON DAYS 1 AND 8 OF EACH CYCLE)
     Route: 042
     Dates: start: 20230427, end: 20230427
  6. ENFORTUMAB VEDOTIN [Suspect]
     Active Substance: ENFORTUMAB VEDOTIN
     Dosage: 1.25 MG/KG, CYCLIC (ON DAYS 1 AND 8 OF EACH CYCLE)
     Route: 042
     Dates: start: 20230504, end: 20230504
  7. DURVALUMAB [Suspect]
     Active Substance: DURVALUMAB
     Indication: Bladder cancer
     Dosage: 1500.0MG ONCE/SINGLE ADMINISTRATION
     Route: 042
     Dates: start: 20230315, end: 20230315
  8. DURVALUMAB [Suspect]
     Active Substance: DURVALUMAB
     Dosage: 1500.0MG ONCE/SINGLE ADMINISTRATION
     Route: 042
     Dates: start: 20230405, end: 20230405
  9. DURVALUMAB [Suspect]
     Active Substance: DURVALUMAB
     Dosage: 1500.0MG ONCE/SINGLE ADMINISTRATION
     Route: 042
     Dates: start: 20230427, end: 20230427
  10. SYMBICORT [Concomitant]
     Active Substance: BUDESONIDE\FORMOTEROL FUMARATE DIHYDRATE
     Indication: Asthma
     Route: 048
     Dates: start: 2011
  11. ALFUZOSIN [Concomitant]
     Active Substance: ALFUZOSIN
     Indication: Prostate cancer
     Route: 048
     Dates: start: 2011
  12. ALFUZOSIN [Concomitant]
     Active Substance: ALFUZOSIN
     Indication: Benign prostatic hyperplasia
  13. PROPRANOLOL HYDROCHLORIDE [Concomitant]
     Active Substance: PROPRANOLOL HYDROCHLORIDE
     Indication: Parkinson^s disease
     Route: 048
     Dates: start: 2007
  14. CILAZAPRIL ANHYDROUS\HYDROCHLOROTHIAZIDE [Concomitant]
     Active Substance: CILAZAPRIL ANHYDROUS\HYDROCHLOROTHIAZIDE
     Indication: Hypertension
     Route: 048
     Dates: start: 20230224

REACTIONS (1)
  - Neutropenia [Recovered/Resolved]

NARRATIVE: CASE EVENT DATE: 20230425
